FAERS Safety Report 5994239-1 (Version None)
Quarter: 2008Q4

REPORT INFORMATION
  Report Type: 
  Country: None (occurrence: None)
  Receive Date: 20081212
  Receipt Date: 20081208
  Transmission Date: 20090506
  Serious: Yes (Death, Hospitalization)
  Sender: FDA-Public Use
  Company Number: JP-BAYER-200812942BYL

PATIENT
  Age: 68 Year
  Sex: Male

DRUGS (9)
  1. NEXAVAR [Suspect]
     Indication: RENAL CELL CARCINOMA STAGE IV
     Dosage: TOTAL DAILY DOSE: 400 MG  UNIT DOSE: 200 MG
     Route: 048
     Dates: start: 20081119, end: 20081125
  2. SOLDEM 1 [Concomitant]
     Dosage: AS USED: 500 ML
     Route: 042
     Dates: start: 20081119, end: 20081124
  3. SOLDEM 3A [Concomitant]
     Dosage: AS USED: 500 ML
     Route: 042
     Dates: start: 20081119, end: 20081124
  4. STRONG NEO-MINOPHAGEN C [Concomitant]
     Dosage: AS USED: 2 DF  UNIT DOSE: 1 DF
     Route: 042
     Dates: start: 20081119, end: 20081124
  5. ADELAVIN-NO.9 [Concomitant]
     Dosage: TOTAL DAILY DOSE: 1 DF  UNIT DOSE: 1 DF
     Route: 042
     Dates: start: 20081119, end: 20081124
  6. LASIX [Concomitant]
     Dosage: AS USED: 2 DF  UNIT DOSE: 1 DF
     Route: 042
     Dates: start: 20081119, end: 20081124
  7. LOBU [Concomitant]
     Dosage: AS USED: 180 MG  UNIT DOSE: 60 MG
     Route: 048
     Dates: start: 20081119, end: 20081124
  8. SELBEX [Concomitant]
     Dosage: AS USED: 150 MG  UNIT DOSE: 50 MG
     Route: 048
     Dates: start: 20081119, end: 20081124
  9. ROHYPNOL [Concomitant]
     Dosage: TOTAL DAILY DOSE: 1 MG  UNIT DOSE: 1 MG
     Route: 048
     Dates: start: 20081119, end: 20081124

REACTIONS (3)
  - HEPATIC FUNCTION ABNORMAL [None]
  - MULTI-ORGAN FAILURE [None]
  - RENAL CELL CARCINOMA STAGE IV [None]
